FAERS Safety Report 10376404 (Version 2)
Quarter: 2014Q3

REPORT INFORMATION
  Report Type: Spontaneous
  Country: NL (occurrence: None)
  Receive Date: 20140806
  Receipt Date: 20140813
  Transmission Date: 20150326
  Serious: Yes (Life-Threatening)
  Sender: FDA-Public Use
  Company Number: AUR-APL-2014-08329

PATIENT
  Age: 50 Year
  Sex: Female

DRUGS (5)
  1. INSULIN ASPART [Concomitant]
     Active Substance: INSULIN ASPART
  2. ATORVASTATIN CALCIUM (ATORVASTATIN CALCIUM) [Suspect]
     Active Substance: ATORVASTATIN CALCIUM
     Indication: HYPERCHOLESTEROLAEMIA
     Route: 048
     Dates: start: 20120328
  3. DESOGESTREL/ETHINYLESTRADIOL BIOGARAN (DESOGESTREL, ETHINYLESTRADIOL) [Concomitant]
  4. EZETROL (EZETIMIBE) [Concomitant]
     Active Substance: EZETIMIBE
  5. RAMIPRIL. [Suspect]
     Active Substance: RAMIPRIL
     Indication: HYPERTENSION
     Route: 048
     Dates: start: 20120629, end: 20140716

REACTIONS (2)
  - Swollen tongue [None]
  - Drug ineffective [None]

NARRATIVE: CASE EVENT DATE: 201407
